FAERS Safety Report 9792686 (Version 4)
Quarter: 2014Q4

REPORT INFORMATION
  Report Type: Report from Study
  Country: US (occurrence: US)
  Receive Date: 20140102
  Receipt Date: 20141028
  Transmission Date: 20150529
  Serious: Yes (Hospitalization, Other)
  Sender: FDA-Public Use
  Company Number: US-SANOFI-AVENTIS-2013SA019336

PATIENT
  Age: 53 Year
  Sex: Female

DRUGS (5)
  1. AUBAGIO [Suspect]
     Active Substance: TERIFLUNOMIDE
     Indication: MULTIPLE SCLEROSIS
     Route: 048
     Dates: start: 20130123
  2. AUBAGIO [Suspect]
     Active Substance: TERIFLUNOMIDE
     Indication: MULTIPLE SCLEROSIS
     Route: 048
     Dates: start: 201302
  3. AUBAGIO [Suspect]
     Active Substance: TERIFLUNOMIDE
     Indication: MULTIPLE SCLEROSIS
     Route: 048
     Dates: start: 20130123
  4. AUBAGIO [Suspect]
     Active Substance: TERIFLUNOMIDE
     Indication: MULTIPLE SCLEROSIS
     Route: 048
     Dates: end: 20141010
  5. AUBAGIO [Suspect]
     Active Substance: TERIFLUNOMIDE
     Indication: MULTIPLE SCLEROSIS
     Route: 048
     Dates: start: 20130123

REACTIONS (10)
  - Blindness [Unknown]
  - Hypoaesthesia [Unknown]
  - Decreased appetite [Recovered/Resolved]
  - Pain [Unknown]
  - Alopecia [Not Recovered/Not Resolved]
  - Nausea [Recovered/Resolved]
  - JC virus infection [Unknown]
  - Drug dose omission [Unknown]
  - Malaise [Unknown]
  - Headache [Not Recovered/Not Resolved]
